FAERS Safety Report 17553489 (Version 1)
Quarter: 2020Q1

REPORT INFORMATION
  Report Type: Spontaneous
  Country: US (occurrence: US)
  Receive Date: 20200318
  Receipt Date: 20200318
  Transmission Date: 20200409
  Serious: No
  Sender: FDA-Public Use
  Company Number: US-LUPIN PHARMACEUTICALS INC.-2019-05023

PATIENT
  Age: 94 Year
  Sex: Female
  Weight: 58.05 kg

DRUGS (2)
  1. SERTRALINE HYDROCHLORIDE TABLETS USP, 25 MG [Suspect]
     Active Substance: SERTRALINE HYDROCHLORIDE
     Indication: INSOMNIA
     Dosage: 25 MILLIGRAM, QD
     Route: 048
     Dates: start: 20190731, end: 20190801
  2. TEMAZEPAM. [Concomitant]
     Active Substance: TEMAZEPAM
     Indication: SLEEP DISORDER
     Dosage: AS NEEDED
     Route: 065

REACTIONS (2)
  - Diarrhoea [Unknown]
  - Drug ineffective for unapproved indication [Unknown]

NARRATIVE: CASE EVENT DATE: 20190731
